FAERS Safety Report 9396084 (Version 2)
Quarter: 2013Q3

REPORT INFORMATION
  Report Type: Report from Study
  Country: CA (occurrence: CA)
  Receive Date: 20130711
  Receipt Date: 20130725
  Transmission Date: 20140515
  Serious: Yes (Hospitalization)
  Sender: FDA-Public Use
  Company Number: CA-JNJFOC-20130701488

PATIENT
  Age: 37 Year
  Sex: Female
  Weight: 53.5 kg

DRUGS (23)
  1. DOXORUBICIN HYDROCHLORIDE [Suspect]
     Indication: OVARIAN CANCER
     Route: 042
     Dates: start: 20130603, end: 20130619
  2. DOXORUBICIN HYDROCHLORIDE [Suspect]
     Indication: OVARIAN CANCER
     Route: 042
     Dates: start: 20121226
  3. EC145 [Suspect]
     Indication: OVARIAN CANCER
     Dosage: EACH 2 WEEKS
     Route: 042
     Dates: start: 20121226
  4. EC145 [Suspect]
     Indication: OVARIAN CANCER
     Route: 042
     Dates: start: 20130603, end: 20130619
  5. PLACEBO [Suspect]
     Indication: OVARIAN CANCER
     Dosage: EACH 2 WEEKS
     Route: 042
     Dates: start: 20121226
  6. PLACEBO [Suspect]
     Indication: OVARIAN CANCER
     Route: 042
     Dates: start: 20130603, end: 20130619
  7. EC20 [Suspect]
     Indication: SINGLE PHOTON EMISSION COMPUTERISED TOMOGRAM
     Route: 042
     Dates: start: 20121218, end: 20121218
  8. EC20 [Suspect]
     Indication: SINGLE PHOTON EMISSION COMPUTERISED TOMOGRAM
     Route: 042
     Dates: start: 20121213, end: 20121213
  9. FOLIC ACID [Suspect]
     Indication: SINGLE PHOTON EMISSION COMPUTERISED TOMOGRAM
     Dosage: ONCE
     Route: 042
     Dates: start: 20121213, end: 20121213
  10. FOLIC ACID [Suspect]
     Indication: SINGLE PHOTON EMISSION COMPUTERISED TOMOGRAM
     Dosage: ONCE
     Route: 042
     Dates: start: 20121218, end: 20121218
  11. ZOFRAN [Concomitant]
     Indication: PREMEDICATION
     Route: 065
     Dates: start: 20130121, end: 20130603
  12. PREDNISONE [Concomitant]
     Indication: IODINE ALLERGY
     Dosage: 1 DAY
     Route: 065
     Dates: start: 20130618, end: 20130619
  13. STATEX [Concomitant]
     Indication: IODINE ALLERGY
     Route: 065
     Dates: start: 20130619, end: 20130619
  14. STEMETIL [Concomitant]
     Indication: NAUSEA
     Route: 065
     Dates: start: 20121226
  15. PANTOLOC [Concomitant]
     Indication: DYSPEPSIA
     Route: 065
     Dates: start: 201106
  16. ATIVAN [Concomitant]
     Indication: PRODUCT USED FOR UNKNOWN INDICATION
     Route: 065
     Dates: start: 201104
  17. POTASSIUM [Concomitant]
     Indication: MINERAL SUPPLEMENTATION
     Route: 065
     Dates: start: 20121210
  18. POTASSIUM [Concomitant]
     Indication: HYPOKALAEMIA
     Route: 065
     Dates: start: 20121210
  19. CALCIUM [Concomitant]
     Indication: MINERAL SUPPLEMENTATION
     Route: 065
     Dates: start: 20121211
  20. DECADRON [Concomitant]
     Indication: PREMEDICATION
     Route: 065
     Dates: start: 20121226, end: 20130603
  21. NAPROXEN [Concomitant]
     Indication: PAIN
     Route: 065
     Dates: start: 20121223
  22. IMOVANE [Concomitant]
     Indication: INSOMNIA
     Route: 065
     Dates: start: 201209
  23. ATARAX [Concomitant]
     Indication: IODINE ALLERGY
     Route: 065
     Dates: start: 20130319, end: 20130619

REACTIONS (1)
  - Constipation [Recovered/Resolved]
